FAERS Safety Report 5919463-5 (Version None)
Quarter: 2008Q4

REPORT INFORMATION
  Report Type: 
  Country: None (occurrence: None)
  Receive Date: 20081015
  Receipt Date: 20081009
  Transmission Date: 20090506
  Serious: Yes (Other)
  Sender: FDA-Public Use
  Company Number: PHEH2008US04946

PATIENT
  Sex: Female
  Weight: 90.703 kg

DRUGS (12)
  1. TEKTURNA [Suspect]
     Dosage: 150 MG, QD
     Dates: start: 20080529
  2. CARDIZEM LA /OLD FORM/ [Concomitant]
     Dosage: 300 MG, QD
  3. ASPIRIN [Concomitant]
     Dosage: 81 MG, QD
  4. K-DUR [Concomitant]
     Dosage: 40 MEQ, BID
  5. HYDROCHLOROTHIAZIDE [Concomitant]
     Dosage: 25 MG, QD
     Route: 048
  6. NITROSTAT [Concomitant]
     Dosage: 0.4 MG, PRN
  7. TRANXENE [Concomitant]
     Dosage: 7.5 MG, QD
  8. ISOSORBIDE [Concomitant]
     Dosage: 40 MG, BID
  9. DARVOCET-N 100 [Concomitant]
     Dosage: UNK
  10. BENADRYL ^PFIZER WARNER-LAMBERT^ [Concomitant]
     Dosage: 25 MG, PRN
  11. VITAMIN B COMPLEX CAP [Concomitant]
     Dosage: UNK
  12. VITAMIN E [Concomitant]
     Dosage: UNK

REACTIONS (6)
  - AMNESIA [None]
  - CHEST PAIN [None]
  - CONFUSIONAL STATE [None]
  - DYSARTHRIA [None]
  - SWELLING [None]
  - SWELLING FACE [None]
